FAERS Safety Report 8006761-7 (Version None)
Quarter: 2011Q4

REPORT INFORMATION
  Report Type: 
  Country: None (occurrence: None)
  Receive Date: 20111227
  Receipt Date: 20111219
  Transmission Date: 20120403
  Serious: No
  Sender: FDA-Public Use
  Company Number: US-JNJFOC-20111208929

PATIENT
  Sex: Female
  Weight: 91.63 kg

DRUGS (2)
  1. FENTANYL-100 [Suspect]
     Dosage: NDC# 0781-7243-55
     Route: 062
     Dates: start: 20111219
  2. FENTANYL-100 [Suspect]
     Indication: PAIN
     Dosage: NDC UNKNOWN
     Route: 062
     Dates: start: 20111101, end: 20111101

REACTIONS (4)
  - DRUG DOSE OMISSION [None]
  - PAIN [None]
  - PRODUCT QUALITY ISSUE [None]
  - WRONG TECHNIQUE IN DRUG USAGE PROCESS [None]
